FAERS Safety Report 4792700-9 (Version None)
Quarter: 2005Q4

REPORT INFORMATION
  Report Type: 
  Country: None (occurrence: None)
  Receive Date: 20051010
  Receipt Date: 20050928
  Transmission Date: 20060501
  Serious: Yes (Hospitalization, Other)
  Sender: FDA-Public Use
  Company Number: PHBS2005KR14339

PATIENT
  Age: 34 Year
  Sex: Female

DRUGS (2)
  1. BROMOCRIPTINE MESYLATE [Suspect]
     Indication: INFERTILITY FEMALE
     Dosage: 2.5 MG, QD
  2. CLOMIPHENE [Suspect]
     Dosage: 150 MG, QD

REACTIONS (10)
  - APGAR SCORE LOW [None]
  - BODY TEMPERATURE INCREASED [None]
  - BREECH PRESENTATION [None]
  - C-REACTIVE PROTEIN INCREASED [None]
  - DRUG EXPOSURE DURING PREGNANCY [None]
  - LABOUR PAIN [None]
  - PREMATURE LABOUR [None]
  - STILLBIRTH [None]
  - TWIN PREGNANCY [None]
  - WHITE BLOOD CELL COUNT INCREASED [None]
